FAERS Safety Report 5100608-4 (Version None)
Quarter: 2006Q3

REPORT INFORMATION
  Report Type: 
  Country: None (occurrence: None)
  Receive Date: 20060907
  Receipt Date: 20060907
  Transmission Date: 20061208
  Serious: Yes (Other)
  Sender: FDA-Public Use
  Company Number: None

PATIENT
  Age: 20 Year
  Sex: Female
  Weight: 71.6683 kg

DRUGS (1)
  1. ENTEX CAP [Suspect]
     Indication: NASOPHARYNGITIS
     Dosage: 400 MG BID PO
     Route: 048

REACTIONS (3)
  - AGITATION [None]
  - MANIA [None]
  - SUICIDAL IDEATION [None]
